FAERS Safety Report 24028891 (Version 1)
Quarter: 2024Q2

REPORT INFORMATION
  Report Type: Spontaneous
  Country: US (occurrence: US)
  Receive Date: 20240628
  Receipt Date: 20240628
  Transmission Date: 20240716
  Serious: Yes (Life-Threatening, Hospitalization)
  Sender: FDA-Public Use
  Company Number: US-MYLANLABS-2024M1057324

PATIENT
  Age: 81 Year
  Sex: Female

DRUGS (3)
  1. LIDOCAINE [Suspect]
     Active Substance: LIDOCAINE
     Indication: Product used for unknown indication
     Dosage: 50 MILLILITER,CEFTRIAXONE WAS INADVERTENTLY DISSOLVED IN LIDOCAINE INSTEAD OF SODIUM-CHLORIDE
     Route: 042
  2. CEFTRIAXONE [Suspect]
     Active Substance: CEFTRIAXONE\CEFTRIAXONE SODIUM
     Indication: Urinary tract infection
     Dosage: 1 GRAM,CEFTRIAXONE WAS INADVERTENTLY DISSOLVED IN LIDOCAINE INSTEAD OF SODIUM-CHLORIDE
     Route: 042
  3. SODIUM CHLORIDE [Suspect]
     Active Substance: SODIUM CHLORIDE
     Indication: Product used for unknown indication
     Dosage: UNK; CEFTRIAXONE WAS INADVERTENTLY DISSOLVED IN LIDOCAINE INSTEAD OF SODIUM-CHLORIDE
     Route: 065

REACTIONS (7)
  - Generalised tonic-clonic seizure [Recovered/Resolved]
  - Apnoea [Recovered/Resolved]
  - Pulse absent [Recovered/Resolved]
  - Pancreatitis [Recovered/Resolved]
  - Hypertriglyceridaemia [Recovered/Resolved]
  - Toxicity to various agents [Recovered/Resolved]
  - Product preparation error [Recovered/Resolved]
